FAERS Safety Report 5712998-X (Version None)
Quarter: 2008Q2

REPORT INFORMATION
  Report Type: 
  Country: None (occurrence: None)
  Receive Date: 20080422
  Receipt Date: 20080409
  Transmission Date: 20081010
  Serious: Yes (Hospitalization)
  Sender: FDA-Public Use
  Company Number: FR-BRISTOL-MYERS SQUIBB COMPANY-14130199

PATIENT
  Age: 54 Year
  Sex: Female
  Weight: 68 kg

DRUGS (3)
  1. LYSODREN [Suspect]
     Indication: ADRENOCORTICAL CARCINOMA
     Dosage: 6G/D-20AUG07-12FEB08.DISCONTINUED-12FEB08-7MAR08.7MAR08-4500MG/D.18MAR08-REDUCED TO 3000MG/D.
     Route: 048
     Dates: start: 20070820
  2. HYDROCORTISONE [Concomitant]
  3. FLUDROCORTISONE ACETATE [Concomitant]
     Dosage: 1 DOSAGE FORM=50(UNITS NOT SPECIFIED)

REACTIONS (16)
  - ABDOMINAL PAIN [None]
  - ADRENAL INSUFFICIENCY [None]
  - ALANINE AMINOTRANSFERASE ABNORMAL [None]
  - ANOREXIA [None]
  - BLOOD COUNT ABNORMAL [None]
  - BLOOD GLUCOSE INCREASED [None]
  - BLOOD POTASSIUM DECREASED [None]
  - DIZZINESS [None]
  - EPIGASTRIC DISCOMFORT [None]
  - FATIGUE [None]
  - LIVER FUNCTION TEST ABNORMAL [None]
  - MYALGIA [None]
  - NAUSEA [None]
  - SKIN IRRITATION [None]
  - VOMITING [None]
  - WEIGHT DECREASED [None]
